FAERS Safety Report 8586573 (Version 3)
Quarter: 2012Q4

REPORT INFORMATION
  Report Type: 
  Country: DE (occurrence: DE)
  Receive Date: 20120530
  Receipt Date: 20121004
  Transmission Date: 20130627
  Serious: Yes (Hospitalization)
  Sender: FDA-Public Use
  Company Number: DE-UCBSA-058008

PATIENT
  Sex: Female

DRUGS (14)
  1. VIMPAT [Suspect]
     Indication: EPILEPSY
     Route: 048
     Dates: end: 20120412
  2. SEROQUEL [Suspect]
     Dosage: FOR THE NIGHT
  3. FORTUM [Suspect]
     Indication: ANTIBIOTIC THERAPY
  4. VANCOMYCIN [Suspect]
     Indication: ANTIBIOTIC THERAPY
  5. VANCOMYCIN [Suspect]
     Indication: ANTIBIOTIC THERAPY
     Route: 048
  6. TAZOBAC [Suspect]
     Indication: ANTIBIOTIC THERAPY
  7. OXCARBAZEPIN [Concomitant]
     Dosage: DAILY DOSE: 900
     Route: 048
  8. DECORTIN H [Concomitant]
     Dosage: 10 MG MORNING
  9. DILTAHEXAL [Concomitant]
     Dosage: 90 MG (1-0-1/2)  PATIENT IS RECEIVING CONTROLLED RELEASE TABLETS
  10. BRONCHORETARD [Concomitant]
     Dosage: 200-0-350 MG
  11. CLOPIDOGREL [Concomitant]
     Dosage: 75
  12. PROCORALAN [Concomitant]
  13. L-THYROXIN [Concomitant]
     Dosage: 50 MICRO G
  14. ASTHMA SPRAY [Concomitant]

REACTIONS (5)
  - Febrile infection [Unknown]
  - Ventricular tachycardia [Unknown]
  - Diarrhoea [Unknown]
  - Abdominal pain [Unknown]
  - Rash [Unknown]
